FAERS Safety Report 4751292-0 (Version None)
Quarter: 2005Q3

REPORT INFORMATION
  Report Type: 
  Country: None (occurrence: None)
  Receive Date: 20050822
  Receipt Date: 20050810
  Transmission Date: 20060218
  Serious: Yes (Life-Threatening)
  Sender: FDA-Public Use
  Company Number: RENA-011432

PATIENT
  Age: 51 Year
  Sex: Male

DRUGS (9)
  1. PHOSBLOCK - 250 MG TABLET [Suspect]
     Indication: HYPERPHOSPHATAEMIA
     Dosage: 6 G DAILY PO
     Route: 048
     Dates: start: 20041203, end: 20050616
  2. CALCIUM POLYSTYRENE SULFONATE [Suspect]
     Indication: HYPERKALAEMIA
     Dosage: 50 G QD PO
     Route: 048
     Dates: start: 20050114, end: 20050615
  3. NIFEDIPINE [Concomitant]
  4. TERMISARTAN [Concomitant]
  5. MEXILETINE HCL [Concomitant]
  6. DOXAZOSIN MESYLATE [Concomitant]
  7. CILAZAPRIL [Concomitant]
  8. AMLODIPINE [Concomitant]
  9. CLONIDINE HCI [Concomitant]

REACTIONS (5)
  - CONSTIPATION [None]
  - HYPERKALAEMIA [None]
  - PERITONEAL HAEMORRHAGE [None]
  - PERITONITIS [None]
  - RECTAL PERFORATION [None]
